FAERS Safety Report 7758645-7 (Version None)
Quarter: 2011Q3

REPORT INFORMATION
  Report Type: 
  Country: None (occurrence: None)
  Receive Date: 20110825
  Receipt Date: 20110607
  Transmission Date: 20111222
  Serious: Yes (Other)
  Sender: FDA-Public Use
  Company Number: 323487

PATIENT
  Age: 68 Year
  Sex: Female
  Weight: 87.1 kg

DRUGS (6)
  1. VICTOZA [Suspect]
     Indication: TYPE 2 DIABETES MELLITUS
     Dosage: 0.6 MG, QD, SUBCUTANEOUS
     Route: 058
     Dates: start: 20110129, end: 20110207
  2. METFORMIN HCL [Concomitant]
  3. PRAVACHOL [Concomitant]
  4. NEURONTIN [Concomitant]
  5. FLONASE (FLUITCASONE PROPIONATE) [Concomitant]
  6. SYNTHROID [Concomitant]

REACTIONS (1)
  - PANCREATITIS ACUTE [None]
